FAERS Safety Report 20195302 (Version 5)
Quarter: 2022Q1

REPORT INFORMATION
  Report Type: Report from Study
  Country: US (occurrence: US)
  Receive Date: 20211216
  Receipt Date: 20220217
  Transmission Date: 20220423
  Serious: Yes (Other)
  Sender: FDA-Public Use
  Company Number: US-BIOVITRUM-2021US12002

PATIENT
  Sex: Female

DRUGS (1)
  1. KINERET [Suspect]
     Active Substance: ANAKINRA
     Indication: Rheumatoid arthritis
     Route: 058
     Dates: start: 20211125

REACTIONS (22)
  - Cerebrovascular accident [Unknown]
  - Nephrolithiasis [Unknown]
  - Mental impairment [Recovering/Resolving]
  - Kidney infection [Unknown]
  - Abdominal distension [Unknown]
  - Feeling abnormal [Unknown]
  - Arthralgia [Unknown]
  - Dizziness [Unknown]
  - Illness [Unknown]
  - Pain [Unknown]
  - Fear [Unknown]
  - Migraine [Unknown]
  - Swelling [Unknown]
  - Swelling face [Unknown]
  - Nausea [Unknown]
  - Fall [Unknown]
  - Unevaluable event [Unknown]
  - Injection site pustule [Recovering/Resolving]
  - Injection site pruritus [Recovering/Resolving]
  - Headache [Unknown]
  - Drug ineffective [Unknown]
  - Product dose omission issue [Unknown]
